FAERS Safety Report 18097395 (Version 2)
Quarter: 2020Q3

REPORT INFORMATION
  Report Type: Report from Study
  Country: PH (occurrence: PH)
  Receive Date: 20200730
  Receipt Date: 20200806
  Transmission Date: 20201103
  Serious: Yes (Death, Hospitalization, Other)
  Sender: FDA-Public Use
  Company Number: NVSC2020PH212850

PATIENT
  Sex: Male

DRUGS (2)
  1. FEBUXOSTAT. [Concomitant]
     Active Substance: FEBUXOSTAT
     Indication: BLOOD URIC ACID ABNORMAL
     Dosage: UNK
     Route: 065
  2. ENTRESTO [Suspect]
     Active Substance: SACUBITRIL\VALSARTAN
     Indication: CARDIAC FAILURE CONGESTIVE
     Dosage: 50 MG, BID (IN MORNING AND EVENING)
     Route: 065
     Dates: start: 2018

REACTIONS (10)
  - Bradycardia [Unknown]
  - Feeding disorder [Unknown]
  - Stress [Unknown]
  - Death [Fatal]
  - Dyspnoea [Unknown]
  - Heart rate decreased [Unknown]
  - Pruritus [Unknown]
  - Cardiac disorder [Unknown]
  - Generalised oedema [Unknown]
  - Animal bite [Unknown]

NARRATIVE: CASE EVENT DATE: 201910
